FAERS Safety Report 9135603 (Version 1)
Quarter: 2013Q1

REPORT INFORMATION
  Report Type: Spontaneous
  Country: US (occurrence: US)
  Receive Date: 20130304
  Receipt Date: 20130304
  Transmission Date: 20140127
  Serious: No
  Sender: FDA-Public Use
  Company Number: US-ENDO PHARMACEUTICALS INC.-PERC20120170

PATIENT
  Sex: Female
  Weight: 59.93 kg

DRUGS (4)
  1. PERCOCET [Suspect]
     Indication: FIBROMYALGIA
     Dosage: 40MG/1300MG
     Route: 048
     Dates: start: 20121106, end: 20121127
  2. VALIUM [Concomitant]
     Indication: PRODUCT USED FOR UNKNOWN INDICATION
     Dosage: 10 MG
     Route: 048
  3. OXYCONTIN [Concomitant]
     Indication: PRODUCT USED FOR UNKNOWN INDICATION
     Route: 048
  4. LUNESTA [Concomitant]
     Indication: PRODUCT USED FOR UNKNOWN INDICATION
     Dosage: 3 MG
     Route: 048

REACTIONS (4)
  - Skin disorder [Recovering/Resolving]
  - Inappropriate schedule of drug administration [Unknown]
  - Pruritus [Recovering/Resolving]
  - Drug ineffective [Recovered/Resolved]
